FAERS Safety Report 6283007-1 (Version None)
Quarter: 2009Q3

REPORT INFORMATION
  Report Type: 
  Country: None (occurrence: None)
  Receive Date: 20090724
  Receipt Date: 20090716
  Transmission Date: 20100115
  Serious: Yes (Hospitalization)
  Sender: FDA-Public Use
  Company Number: PHHO2008US03359

PATIENT
  Sex: Female
  Weight: 92.517 kg

DRUGS (2)
  1. LOTREL [Suspect]
     Indication: HYPERTENSION
     Dosage: LEVEL 1
     Route: 048
     Dates: start: 20040521, end: 20070831
  2. LOTREL [Suspect]
     Dosage: LEVEL 3
     Route: 048

REACTIONS (9)
  - ATRIAL FIBRILLATION [None]
  - DECREASED APPETITE [None]
  - DIZZINESS [None]
  - FATIGUE [None]
  - LETHARGY [None]
  - PALLOR [None]
  - TACHYCARDIA [None]
  - VISION BLURRED [None]
  - VOMITING [None]
